FAERS Safety Report 9867147 (Version 1)
Quarter: 2014Q1

REPORT INFORMATION
  Report Type: Spontaneous
  Country: US (occurrence: US)
  Receive Date: 20140204
  Receipt Date: 20140204
  Transmission Date: 20141002
  Serious: Yes (Other)
  Sender: FDA-Public Use
  Company Number: US-BAYER-2014-017352

PATIENT
  Age: 29 Year
  Sex: Female

DRUGS (9)
  1. YAZ [Suspect]
  2. YASMIN [Suspect]
  3. OCELLA [Suspect]
  4. BUPIVACAINE [Concomitant]
     Dosage: 0.5 %, 4 ML
     Dates: start: 20091023
  5. DEPO-MEDROL [Concomitant]
     Dosage: 60 MG, UNK
     Dates: start: 20091023
  6. PROTONIX [Concomitant]
  7. ADVIL [Concomitant]
     Dosage: UNK UNK, PRN
  8. LIDOCAINE [Concomitant]
     Dosage: 5 %, UNK
  9. ALPRAZOLAM [Concomitant]
     Dosage: 0.25 MG, UNK

REACTIONS (4)
  - Cholelithiasis [None]
  - Deep vein thrombosis [Recovered/Resolved]
  - Thrombophlebitis superficial [None]
  - Pulmonary embolism [None]
